FAERS Safety Report 4813025-9 (Version None)
Quarter: 2005Q4

REPORT INFORMATION
  Report Type: 
  Country: None (occurrence: None)
  Receive Date: 20051026
  Receipt Date: 20051011
  Transmission Date: 20060501
  Serious: Yes (Other)
  Sender: FDA-Public Use
  Company Number: USA0510110653

PATIENT
  Age: 49 Year
  Sex: Female

DRUGS (1)
  1. PROZAC [Suspect]
     Indication: ANXIETY
     Dosage: 45 MG
     Dates: start: 19870101, end: 20050101

REACTIONS (1)
  - ABNORMAL BEHAVIOUR [None]
